FAERS Safety Report 8376995-0 (Version None)
Quarter: 2012Q2

REPORT INFORMATION
  Report Type: 
  Country: None (occurrence: None)
  Receive Date: 20120521
  Receipt Date: 20120507
  Transmission Date: 20120825
  Serious: Yes (Other)
  Sender: FDA-Public Use
  Company Number: 1203-138

PATIENT
  Age: 81 Year
  Sex: Female

DRUGS (11)
  1. VITAMIN B (VITAMIN-B-COMPLEX STANDARD) [Concomitant]
  2. CALCIUM CARBONATE [Concomitant]
  3. PRESERVISION OCULAR VITAMINS (OCUVITE) [Concomitant]
  4. LISINOPRIL [Concomitant]
  5. SYNTHROID [Concomitant]
  6. FISH OIL (FISH OIL) [Concomitant]
  7. MULTIVITAMIN [Concomitant]
  8. EYLEA [Suspect]
     Indication: AGE-RELATED MACULAR DEGENERATION
     Dosage: 0.05 MGL, ONCE OD, INTRAVITREAL 0.05 ML, ONCE OS, INTRAVITREAL
     Dates: start: 20120208, end: 20120314
  9. EYLEA [Suspect]
     Indication: AGE-RELATED MACULAR DEGENERATION
     Dosage: 0.05 MGL, ONCE OD, INTRAVITREAL 0.05 ML, ONCE OS, INTRAVITREAL
     Dates: start: 20120208, end: 20120314
  10. METOPROLOL TARTRATE [Concomitant]
  11. ASPIRIN [Concomitant]

REACTIONS (1)
  - RETINAL OEDEMA [None]
